FAERS Safety Report 5799598-0 (Version None)
Quarter: 2008Q3

REPORT INFORMATION
  Report Type: 
  Country: None (occurrence: None)
  Receive Date: 20080703
  Receipt Date: 20080620
  Transmission Date: 20090109
  Serious: Yes (Hospitalization, Other)
  Sender: FDA-Public Use
  Company Number: PHHY2008JP08484

PATIENT
  Sex: Male
  Weight: 52 kg

DRUGS (4)
  1. DIOVAN [Suspect]
     Indication: HYPERTENSION
     Dosage: 80 MG DAILY
     Route: 048
     Dates: start: 20051214, end: 20080519
  2. DIOVAN [Suspect]
     Indication: HYPERLIPIDAEMIA
  3. ADALAT [Concomitant]
     Dosage: 40 MG DAILY
     Route: 048
     Dates: start: 20060125
  4. PLETAL [Concomitant]
     Indication: CEREBRAL INFARCTION
     Dosage: 200 MG DAILY
     Route: 048
     Dates: start: 20050628, end: 20080519

REACTIONS (7)
  - ASTHENIA [None]
  - BLOOD CREATINE PHOSPHOKINASE INCREASED [None]
  - CHROMATURIA [None]
  - GAIT DISTURBANCE [None]
  - PYREXIA [None]
  - RHABDOMYOLYSIS [None]
  - SPEECH DISORDER [None]
